FAERS Safety Report 18360893 (Version 1)
Quarter: 2020Q4

REPORT INFORMATION
  Report Type: Spontaneous
  Country: JP (occurrence: JP)
  Receive Date: 20201008
  Receipt Date: 20201008
  Transmission Date: 20210114
  Serious: Yes (Hospitalization, Other)
  Sender: FDA-Public Use
  Company Number: JP-OTSUKA-2020_024090

PATIENT
  Age: 46 Year
  Sex: Male

DRUGS (1)
  1. ARIPIPRAZOLE. [Suspect]
     Active Substance: ARIPIPRAZOLE
     Indication: SCHIZOPHRENIA
     Dosage: UNK, ONCE EVERY 4 WEEKS
     Route: 030

REACTIONS (5)
  - Nasopharyngitis [Unknown]
  - Reversible cerebral vasoconstriction syndrome [Unknown]
  - Vertebral artery stenosis [Unknown]
  - Cerebellar infarction [Unknown]
  - Headache [Unknown]
